FAERS Safety Report 22016177 (Version 2)
Quarter: 2023Q2

REPORT INFORMATION
  Report Type: Report from Study
  Country: US (occurrence: US)
  Receive Date: 20230221
  Receipt Date: 20230415
  Transmission Date: 20230721
  Serious: No
  Sender: FDA-Public Use
  Company Number: US-002147023-NVSC2023US038276

PATIENT
  Sex: Male
  Weight: 79.365 kg

DRUGS (2)
  1. TREPROSTINIL [Suspect]
     Active Substance: TREPROSTINIL
     Indication: Pulmonary arterial hypertension
     Dosage: 27 NG/KG/ MIN, CONT
     Route: 058
     Dates: start: 20210729
  2. TREPROSTINIL [Suspect]
     Active Substance: TREPROSTINIL
     Dosage: 27 NG/KG/ MIN, CONT
     Route: 058

REACTIONS (3)
  - Burning sensation [Unknown]
  - Feeling abnormal [Unknown]
  - Hypersensitivity [Unknown]
